FAERS Safety Report 8850839 (Version 1)
Quarter: 2012Q4

REPORT INFORMATION
  Report Type: 
  Country: BD (occurrence: BD)
  Receive Date: 20121019
  Receipt Date: 20121019
  Transmission Date: 20130627
  Serious: Yes (Death, Other)
  Sender: FDA-Public Use
  Company Number: PHHY2012BD093065

PATIENT
  Age: 60 Year
  Sex: Female

DRUGS (1)
  1. EXELON PATCH [Suspect]
     Indication: DEMENTIA
     Dosage: 4.6 mg, Daily
     Route: 062
     Dates: start: 201006, end: 201102

REACTIONS (1)
  - Cerebrovascular accident [Fatal]
